FAERS Safety Report 17068157 (Version 1)
Quarter: 2019Q4

REPORT INFORMATION
  Report Type: Spontaneous
  Country: IN (occurrence: IN)
  Receive Date: 20191122
  Receipt Date: 20191122
  Transmission Date: 20200122
  Serious: Yes (Other)
  Sender: FDA-Public Use
  Company Number: IN-BAXTER-2019BAX023221

PATIENT
  Age: 82 Year
  Sex: Male

DRUGS (5)
  1. DEXTROSE ANHYDROUS IP [Suspect]
     Active Substance: ANHYDROUS DEXTROSE
     Route: 040
  2. DEXTROSE ANHYDROUS IP [Suspect]
     Active Substance: ANHYDROUS DEXTROSE
     Route: 065
  3. LINEZOX [Suspect]
     Active Substance: LINEZOLID
     Indication: HIP SURGERY
  4. DEXTROSE ANHYDROUS IP [Suspect]
     Active Substance: ANHYDROUS DEXTROSE
     Indication: HYPOGLYCAEMIA
     Route: 041
  5. LINEZOX [Suspect]
     Active Substance: LINEZOLID
     Indication: POST PROCEDURAL INFECTION
     Route: 065

REACTIONS (4)
  - Antidiuretic hormone abnormality [Recovered/Resolved]
  - Drug ineffective [Unknown]
  - Hypoglycaemia [Not Recovered/Not Resolved]
  - Bone marrow failure [Unknown]
